FAERS Safety Report 10090283 (Version 2)
Quarter: 2014Q2

REPORT INFORMATION
  Report Type: Spontaneous
  Country: US (occurrence: US)
  Receive Date: 20140421
  Receipt Date: 20140509
  Transmission Date: 20141212
  Serious: Yes (Hospitalization)
  Sender: FDA-Public Use
  Company Number: US-BAYER-2014-056133

PATIENT
  Age: 21 Year
  Sex: Female
  Weight: 60 kg

DRUGS (9)
  1. YAZ [Suspect]
     Indication: MENSTRUAL CYCLE MANAGEMENT
  2. AZITHROMYCIN [Concomitant]
     Dosage: 250 MG, UNK
  3. ZYRTEC [Concomitant]
     Dosage: DAILY
  4. TORADOL [Concomitant]
     Indication: CHEST PAIN
  5. PERCOCET [Concomitant]
     Indication: CHEST PAIN
     Dosage: 5/325, 1 EVERY 6 HOURS AS NEEDED
  6. NAPROSYN [Concomitant]
     Dosage: 500 MG, BID
  7. Z-PAK [Concomitant]
  8. SUDAFED [Concomitant]
  9. MOTRIN [Concomitant]

REACTIONS (1)
  - Pulmonary embolism [None]
